FAERS Safety Report 8093595-0 (Version None)
Quarter: 2012Q1

REPORT INFORMATION
  Report Type: 
  Country: None (occurrence: None)
  Receive Date: 20120129
  Receipt Date: 20110921
  Transmission Date: 20120608
  Serious: No
  Sender: FDA-Public Use
  Company Number: US-ABBOTT-11P-163-0856859-00

PATIENT
  Age: 41 Year
  Sex: Female

DRUGS (11)
  1. PRILOSEC [Concomitant]
  2. COZAAR [Concomitant]
     Indication: BLOOD PRESSURE
     Route: 048
  3. HUMIRA [Suspect]
     Indication: PSORIASIS
     Dates: start: 20110501
  4. LEVOTHYROXINE SODIUM [Concomitant]
     Indication: THYROID DISORDER
     Route: 048
  5. CLOBETOSOL [Concomitant]
     Indication: PSORIASIS
     Dosage: EVERY DAY ON LEGS
     Route: 061
  6. CYMBALTA [Concomitant]
     Indication: DEPRESSION
     Route: 048
  7. CYMBALTA [Concomitant]
     Indication: FIBROMYALGIA
  8. PRILOSEC [Concomitant]
     Indication: GASTROOESOPHAGEAL REFLUX DISEASE
  9. METFORMIN HCL [Concomitant]
     Indication: DIABETES MELLITUS
     Route: 048
  10. WARFARIN SODIUM [Concomitant]
     Indication: PRODUCT USED FOR UNKNOWN INDICATION
     Dosage: ONE A DAY 6 DAYS A WEEK
     Route: 048
  11. AMARYL [Concomitant]
     Indication: DIABETES MELLITUS
     Route: 048

REACTIONS (2)
  - GASTROOESOPHAGEAL REFLUX DISEASE [None]
  - BLOOD CHOLESTEROL INCREASED [None]
